FAERS Safety Report 13040113 (Version 3)
Quarter: 2017Q1

REPORT INFORMATION
  Report Type: Report from Study
  Country: None (occurrence: PA)
  Receive Date: 20161219
  Receipt Date: 20170112
  Transmission Date: 20170428
  Serious: Yes (Hospitalization, Other)
  Sender: FDA-Public Use
  Company Number: PA-ABBVIE-16P-125-1814223-00

PATIENT
  Age: 44 Year
  Sex: Female

DRUGS (1)
  1. ZEMPLAR [Suspect]
     Active Substance: PARICALCITOL
     Indication: HYPERPARATHYROIDISM SECONDARY
     Route: 042
     Dates: start: 20081001

REACTIONS (10)
  - Pneumonia [Not Recovered/Not Resolved]
  - Hepatitis B [Unknown]
  - Pain in extremity [Unknown]
  - Pleural effusion [Not Recovered/Not Resolved]
  - Joint neoplasm [Unknown]
  - Neoplasm [Unknown]
  - Dyspnoea [Unknown]
  - Mobility decreased [Unknown]
  - Arthralgia [Unknown]
  - Abdominal hernia [Not Recovered/Not Resolved]

NARRATIVE: CASE EVENT DATE: 201608
